FAERS Safety Report 16017391 (Version 1)
Quarter: 2019Q1

REPORT INFORMATION
  Report Type: Spontaneous
  Country: NO (occurrence: NO)
  Receive Date: 20190228
  Receipt Date: 20190228
  Transmission Date: 20190418
  Serious: Yes (Death)
  Sender: FDA-Public Use
  Company Number: NO-IMPAX LABORATORIES, LLC-2019-IPXL-00568

PATIENT

DRUGS (1)
  1. ADRENACLICK [Suspect]
     Active Substance: EPINEPHRINE
     Indication: CARDIAC ARREST
     Dosage: 2-3 MG
     Route: 042

REACTIONS (1)
  - Adverse event [Fatal]
